FAERS Safety Report 7249383-8 (Version None)
Quarter: 2011Q1

REPORT INFORMATION
  Report Type: 
  Country: None (occurrence: None)
  Receive Date: 20110128
  Receipt Date: 20101130
  Transmission Date: 20110831
  Serious: Yes (Other)
  Sender: FDA-Public Use
  Company Number: US-BAYER-201021947NA

PATIENT
  Sex: Female
  Weight: 50.794 kg

DRUGS (3)
  1. YASMIN [Suspect]
     Indication: PRODUCT USED FOR UNKNOWN INDICATION
     Dosage: UNK UNK, QD
     Route: 048
     Dates: start: 20080101
  2. YAZ [Suspect]
     Indication: ACNE
  3. YAZ [Suspect]
     Indication: MENSTRUATION IRREGULAR
     Dosage: UNK UNK, QD
     Route: 048
     Dates: start: 20080214, end: 20080928

REACTIONS (6)
  - DEEP VEIN THROMBOSIS [None]
  - SKIN DISCOLOURATION [None]
  - COLLATERAL CIRCULATION [None]
  - TELANGIECTASIA [None]
  - PAIN IN EXTREMITY [None]
  - OEDEMA PERIPHERAL [None]
